FAERS Safety Report 6984816-3 (Version None)
Quarter: 2010Q3

REPORT INFORMATION
  Report Type: 
  Country: None (occurrence: None)
  Receive Date: 20100915
  Receipt Date: 20100913
  Transmission Date: 20110219
  Serious: Yes (Other)
  Sender: FDA-Public Use
  Company Number: US-BAYER-200916848NA

PATIENT
  Age: 31 Year
  Sex: Female

DRUGS (5)
  1. BETASERON [Suspect]
     Indication: RELAPSING-REMITTING MULTIPLE SCLEROSIS
     Route: 058
     Dates: start: 19951107, end: 20000711
  2. BETASERON [Suspect]
     Route: 058
     Dates: start: 20020625, end: 20060323
  3. BETASERON [Suspect]
     Route: 058
     Dates: start: 20060415, end: 20080601
  4. BETASERON [Suspect]
     Dosage: TOTAL DAILY DOSE: 8 MIU
     Route: 058
     Dates: start: 20091130
  5. BETASERON [Suspect]
     Route: 058
     Dates: start: 20090420, end: 20090831

REACTIONS (5)
  - DEPRESSION [None]
  - NASAL SEPTAL OPERATION [None]
  - NO ADVERSE EVENT [None]
  - POSTPARTUM DEPRESSION [None]
  - UVULECTOMY [None]
